FAERS Safety Report 13725904 (Version 1)
Quarter: 2017Q3

REPORT INFORMATION
  Report Type: Spontaneous
  Country: US (occurrence: US)
  Receive Date: 20170706
  Receipt Date: 20170706
  Transmission Date: 20171127
  Serious: Yes (Disabling)
  Sender: FDA-Public Use
  Company Number: None

PATIENT
  Age: 48 Year
  Sex: Female
  Weight: 51.75 kg

DRUGS (2)
  1. CYMBALTA [Suspect]
     Active Substance: DULOXETINE HYDROCHLORIDE
     Indication: FIBROMYALGIA
     Dates: start: 20161216
  2. MULTI VITAMINS [Concomitant]
     Active Substance: VITAMINS

REACTIONS (19)
  - Paraesthesia [None]
  - Headache [None]
  - Crying [None]
  - Pyrexia [None]
  - Withdrawal syndrome [None]
  - Balance disorder [None]
  - Chills [None]
  - Nausea [None]
  - Gait inability [None]
  - Insomnia [None]
  - Amnesia [None]
  - Fatigue [None]
  - Quality of life decreased [None]
  - Pain [None]
  - Hyperhidrosis [None]
  - Influenza [None]
  - Dyspepsia [None]
  - Dizziness [None]
  - Vomiting [None]

NARRATIVE: CASE EVENT DATE: 20170609
